FAERS Safety Report 9663749 (Version 1)
Quarter: 2013Q4

REPORT INFORMATION
  Report Type: Spontaneous
  Country: US (occurrence: None)
  Receive Date: 20131030
  Receipt Date: 20131030
  Transmission Date: 20140711
  Serious: Yes (Disabling)
  Sender: FDA-Public Use
  Company Number: None

PATIENT
  Age: 59 Year
  Sex: Female
  Weight: 54.43 kg

DRUGS (1)
  1. BUTRANS [Suspect]
     Indication: PAIN
     Dosage: BUTRAN?APPLIED AS MEDICATED PATCH TO SKIN
     Dates: start: 20131023, end: 20131029

REACTIONS (5)
  - Back pain [None]
  - Application site pruritus [None]
  - Pruritus generalised [None]
  - Eczema [None]
  - Muscle spasms [None]
